FAERS Safety Report 14779140 (Version 2)
Quarter: 2018Q4

REPORT INFORMATION
  Report Type: Report from Study
  Country: US (occurrence: US)
  Receive Date: 20180419
  Receipt Date: 20181122
  Transmission Date: 20190204
  Serious: Yes (Hospitalization)
  Sender: FDA-Public Use
  Company Number: US-BAUSCH-BL-2018-011217

PATIENT
  Sex: Male

DRUGS (1)
  1. XIFAXAN [Suspect]
     Active Substance: RIFAXIMIN
     Indication: HEPATIC CIRRHOSIS
     Route: 065

REACTIONS (5)
  - Inability to afford medication [Unknown]
  - Hospitalisation [Unknown]
  - Wrong technique in product usage process [Not Recovered/Not Resolved]
  - Impaired work ability [Unknown]
  - Back pain [Unknown]
